FAERS Safety Report 5777065-8 (Version None)
Quarter: 2008Q2

REPORT INFORMATION
  Report Type: 
  Country: None (occurrence: None)
  Receive Date: 20080616
  Receipt Date: 20080603
  Transmission Date: 20081010
  Serious: Yes (Death, Congenital Anomaly)
  Sender: FDA-Public Use
  Company Number: 8033470

PATIENT
  Weight: 0.884 kg

DRUGS (3)
  1. NIFEDIPINE [Suspect]
     Dosage: TRP
     Route: 064
  2. FUROSEMIDE [Suspect]
     Dosage: TRP
     Route: 064
  3. CANDESARTAN CILEXETIL [Suspect]
     Indication: BLOOD PRESSURE INCREASED
     Dosage: 4 MG /D TRP
     Route: 064

REACTIONS (10)
  - APGAR SCORE LOW [None]
  - BLADDER AGENESIS [None]
  - DEATH NEONATAL [None]
  - DEFORMITY THORAX [None]
  - INDUCED LABOUR [None]
  - MATERNAL DRUGS AFFECTING FOETUS [None]
  - OLIGOHYDRAMNIOS [None]
  - PREMATURE BABY [None]
  - PULMONARY HYPOPLASIA [None]
  - RENAL APLASIA [None]
